FAERS Safety Report 8519076-5 (Version None)
Quarter: 2012Q3

REPORT INFORMATION
  Report Type: 
  Country: None (occurrence: None)
  Receive Date: 20120718
  Receipt Date: 20120712
  Transmission Date: 20120928
  Serious: No
  Sender: FDA-Public Use
  Company Number: US-009507513-1109USA00240

PATIENT

DRUGS (2)
  1. EVISTA [Concomitant]
  2. SINEMET [Suspect]
     Indication: PARKINSON'S DISEASE
     Dosage: 12-14 TABLETS PER DAY
     Route: 048
     Dates: start: 19940101

REACTIONS (11)
  - DYSPHAGIA [None]
  - MUSCULOSKELETAL STIFFNESS [None]
  - PARAESTHESIA [None]
  - OVERDOSE [None]
  - TREMOR [None]
  - TABLET PHYSICAL ISSUE [None]
  - MUSCLE SPASMS [None]
  - RESTLESS LEGS SYNDROME [None]
  - DIARRHOEA [None]
  - WRONG TECHNIQUE IN DRUG USAGE PROCESS [None]
  - CHEST DISCOMFORT [None]
